FAERS Safety Report 26069936 (Version 1)
Quarter: 2025Q4

REPORT INFORMATION
  Report Type: Spontaneous
  Country: US (occurrence: US)
  Receive Date: 20251120
  Receipt Date: 20251120
  Transmission Date: 20260117
  Serious: No
  Sender: CATALYST PHARMA
  Company Number: US-CATALYST PHARMACEUTICALS-US-CATA-25-01335

PATIENT
  Sex: Male
  Weight: 19.6 kg

DRUGS (14)
  1. AGAMREE [Suspect]
     Active Substance: VAMOROLONE
     Indication: Duchenne muscular dystrophy
     Dosage: 1.6 ML DAILY
     Route: 048
     Dates: start: 20240518
  2. AGAMREE [Suspect]
     Active Substance: VAMOROLONE
     Dosage: 2.7 ML DAILY
     Route: 048
     Dates: start: 20250805, end: 2025
  3. AGAMREE [Suspect]
     Active Substance: VAMOROLONE
     Dosage: 2.2 ML DAILY
     Route: 048
     Dates: start: 20250904
  4. VITAMIN D3 [Concomitant]
     Active Substance: CHOLECALCIFEROL
     Indication: Bone disorder
     Dosage: 1000 UNITS DAILY
     Route: 048
  5. TUMS [Concomitant]
     Active Substance: CALCIUM CARBONATE
     Indication: Bone disorder
     Dosage: 1 TABLET DAILY
     Route: 048
  6. EXONDYS 51 [Concomitant]
     Active Substance: ETEPLIRSEN
     Indication: Duchenne muscular dystrophy
     Dosage: 500 MG WEEKLY
     Route: 042
  7. ACETAMINOPHEN [Concomitant]
     Active Substance: ACETAMINOPHEN
     Indication: Pyrexia
     Dosage: 5 ML AS NEEDED
     Route: 048
  8. EPSOM SALT [Concomitant]
     Active Substance: MAGNESIUM SULFATE
     Indication: Myalgia
     Dosage: TWO TABLE SPOONS EVERY OTHER DAY
     Route: 065
  9. IBUPROFEN [Concomitant]
     Active Substance: IBUPROFEN
     Indication: Pain
     Dosage: 5 ML AS NEEDED
     Route: 048
  10. IBUPROFEN [Concomitant]
     Active Substance: IBUPROFEN
     Indication: Pyrexia
  11. ACETAMINOPHEN [Concomitant]
     Active Substance: ACETAMINOPHEN
     Indication: Pain
     Dosage: 120 MG AS NEEDED
     Route: 054
  12. ACETAMINOPHEN [Concomitant]
     Active Substance: ACETAMINOPHEN
     Indication: Pyrexia
  13. MAGNESIUM [Concomitant]
     Active Substance: MAGNESIUM
     Indication: Sleep disorder
     Dosage: ONE APPLICATION AS NEEDED
     Route: 065
  14. SODIUM CHLORIDE [Concomitant]
     Active Substance: SODIUM CHLORIDE
     Indication: Rhinalgia
     Dosage: ONE SPRAY AS NEEDED
     Route: 065

REACTIONS (4)
  - Pain in extremity [Not Recovered/Not Resolved]
  - Irritability [Not Recovered/Not Resolved]
  - Aggression [Recovering/Resolving]
  - Mood altered [Recovering/Resolving]

NARRATIVE: CASE EVENT DATE: 20250101
